FAERS Safety Report 22655578 (Version 1)
Quarter: 2023Q2

REPORT INFORMATION
  Report Type: Other
  Country: CA (occurrence: CA)
  Receive Date: 20230629
  Receipt Date: 20230629
  Transmission Date: 20230722
  Serious: Yes (Other)
  Sender: FDA-Public Use
  Company Number: CA-APOTEX-2023AP009346

PATIENT
  Age: 51 Year
  Sex: Male

DRUGS (9)
  1. TICAGRELOR [Suspect]
     Active Substance: TICAGRELOR
     Indication: Anticoagulant therapy
     Dosage: 90 MILLIGRAM, BID
     Route: 048
  2. ATORVASTATIN [Suspect]
     Active Substance: ATORVASTATIN
     Indication: Blood cholesterol
     Dosage: 80 MILLIGRAM, QD
     Route: 048
  3. ATORVASTATIN [Suspect]
     Active Substance: ATORVASTATIN
     Indication: Anticoagulant therapy
  4. BISOPROLOL [Suspect]
     Active Substance: BISOPROLOL
     Indication: Heart rate
     Dosage: 2.5 MILLIGRAM, QD
     Route: 048
  5. BISOPROLOL [Suspect]
     Active Substance: BISOPROLOL
     Indication: Blood pressure measurement
  6. PANTOPRAZOLE [Suspect]
     Active Substance: PANTOPRAZOLE
     Indication: Prophylaxis
     Dosage: 40 MILLIGRAM, QD
     Route: 048
  7. PANTOPRAZOLE [Suspect]
     Active Substance: PANTOPRAZOLE
     Indication: Abdominal discomfort
  8. ASPIRIN [Suspect]
     Active Substance: ASPIRIN
     Indication: Anticoagulant therapy
     Dosage: 81 MILLIGRAM, QD
     Route: 065
  9. CANDESARTAN [Concomitant]
     Active Substance: CANDESARTAN
     Indication: Product used for unknown indication
     Dosage: UNK
     Route: 065

REACTIONS (3)
  - Rash erythematous [Not Recovered/Not Resolved]
  - Pyrexia [Not Recovered/Not Resolved]
  - Pruritus [Not Recovered/Not Resolved]
